FAERS Safety Report 6891017-6 (Version None)
Quarter: 2010Q3

REPORT INFORMATION
  Report Type: 
  Country: None (occurrence: None)
  Receive Date: 20100731
  Receipt Date: 20090507
  Transmission Date: 20110219
  Serious: No
  Sender: FDA-Public Use
  Company Number: US-PFIZER INC-2009189569

PATIENT
  Age: 84 Year
  Sex: Female

DRUGS (7)
  1. LIPITOR [Suspect]
     Dosage: 10 MG, 1X/DAY
     Dates: start: 20030101
  2. OSTEO BI-FLEX [Interacting]
     Dosage: UNK
     Dates: start: 20090301, end: 20090301
  3. VALSARTAN [Concomitant]
     Dosage: UNK
  4. CENTRUM SILVER [Concomitant]
     Dosage: UNK
  5. VITAMIN D [Concomitant]
     Dosage: UNK
  6. CALCIUM [Concomitant]
     Dosage: UNK
  7. IBANDRONATE SODIUM [Concomitant]
     Dosage: UNK

REACTIONS (4)
  - DRUG INTERACTION [None]
  - JOINT RANGE OF MOTION DECREASED [None]
  - MUSCLE DISORDER [None]
  - MUSCULOSKELETAL PAIN [None]
